FAERS Safety Report 5092119-X (Version None)
Quarter: 2006Q3

REPORT INFORMATION
  Report Type: 
  Country: None (occurrence: None)
  Receive Date: 20060828
  Receipt Date: 20060828
  Transmission Date: 20061208
  Serious: Yes (Hospitalization)
  Sender: FDA-Public Use
  Company Number: None

PATIENT
  Age: 56 Year
  Sex: Male
  Weight: 47 kg

DRUGS (8)
  1. AMIFOSTINE [Suspect]
     Indication: TONGUE NEOPLASM MALIGNANT STAGE UNSPECIFIED
     Dosage: 500MG IN 2.9ML NS DAILY
     Dates: start: 20060411, end: 20060510
  2. CELEXA [Concomitant]
  3. ADVAIR DISKUS 100/50 [Concomitant]
  4. HYDROMORPHONE HCL [Concomitant]
  5. METHADONE HCL [Concomitant]
  6. NEURONTIN [Concomitant]
  7. TRAZODONE HCL [Concomitant]
  8. ZYPREXA [Concomitant]

REACTIONS (5)
  - ASPIRATION [None]
  - HYPOTENSION [None]
  - INFECTION [None]
  - LOSS OF CONSCIOUSNESS [None]
  - LUNG INFILTRATION [None]
